FAERS Safety Report 14776595 (Version 1)
Quarter: 2018Q2

REPORT INFORMATION
  Report Type: Report from Study
  Country: None (occurrence: CA)
  Receive Date: 20180418
  Receipt Date: 20180418
  Transmission Date: 20180711
  Serious: Yes (Other)
  Sender: FDA-Public Use
  Company Number: CA-ABBVIE-18K-028-2311430-00

PATIENT
  Sex: Female

DRUGS (1)
  1. HUMIRA [Suspect]
     Active Substance: ADALIMUMAB
     Indication: CROHN^S DISEASE
     Route: 058
     Dates: start: 20120514, end: 201803

REACTIONS (7)
  - Exposure during pregnancy [Unknown]
  - Premature delivery [Unknown]
  - Rectal haemorrhage [Unknown]
  - Premature labour [Unknown]
  - Twin pregnancy [Unknown]
  - Prolonged labour [Unknown]
  - Live birth [Unknown]

NARRATIVE: CASE EVENT DATE: 2018
